FAERS Safety Report 9645173 (Version 3)
Quarter: 2013Q4

REPORT INFORMATION
  Report Type: Spontaneous
  Country: US (occurrence: US)
  Receive Date: 20131025
  Receipt Date: 20131202
  Transmission Date: 20140711
  Serious: Yes (Hospitalization)
  Sender: FDA-Public Use
  Company Number: US-ASTELLAS-2013US010277

PATIENT
  Age: 36 Year
  Sex: Male

DRUGS (4)
  1. PROGRAF [Suspect]
     Indication: INTESTINAL TRANSPLANT
     Dosage: UNK
     Route: 048
     Dates: start: 20130616
  2. PROGRAF [Suspect]
     Dosage: 7 MG, BID
     Route: 048
  3. PROGRAF [Suspect]
     Indication: INTESTINAL TRANSPLANT
     Dosage: UNK
     Route: 042
     Dates: start: 201309, end: 201309
  4. PROGRAF [Suspect]
     Indication: INTESTINAL TRANSPLANT
     Dosage: UNK
     Route: 048
     Dates: start: 201309

REACTIONS (4)
  - Off label use [Unknown]
  - Drug ineffective [Unknown]
  - Wrong technique in drug usage process [Unknown]
  - Malabsorption [Not Recovered/Not Resolved]
